FAERS Safety Report 4499540-9 (Version None)
Quarter: 2004Q4

REPORT INFORMATION
  Report Type: 
  Country: None (occurrence: None)
  Receive Date: 20041112
  Receipt Date: 20041104
  Transmission Date: 20050328
  Serious: Yes (Other)
  Sender: FDA-Public Use
  Company Number: PHBS2004SE14980

PATIENT

DRUGS (4)
  1. RITALIN [Suspect]
     Indication: NARCOLEPSY
     Route: 065
  2. LEVAXIN [Concomitant]
  3. SYMBICORT [Concomitant]
  4. SPARKAL [Concomitant]

REACTIONS (1)
  - ATRIAL FIBRILLATION [None]
